FAERS Safety Report 24838831 (Version 1)
Quarter: 2025Q1

REPORT INFORMATION
  Report Type: Spontaneous
  Country: US (occurrence: US)
  Receive Date: 20250114
  Receipt Date: 20250114
  Transmission Date: 20250409
  Serious: No
  Sender: ROCHE
  Company Number: US-ROCHE-10000175111

PATIENT
  Age: 85 Year
  Sex: Female
  Weight: 54.43 kg

DRUGS (6)
  1. ACTEMRA [Suspect]
     Active Substance: TOCILIZUMAB
     Indication: Polymyalgia rheumatica
     Dosage: 162 MG/0.9 M
     Route: 058
     Dates: start: 202410
  2. ACTEMRA [Suspect]
     Active Substance: TOCILIZUMAB
     Indication: Giant cell arteritis
  3. REPATHA [Concomitant]
     Active Substance: EVOLOCUMAB
     Indication: Low density lipoprotein increased
     Dosage: SATURDAYS
     Route: 058
     Dates: start: 202407
  4. PREDNISONE [Concomitant]
     Active Substance: PREDNISONE
     Indication: Polymyalgia rheumatica
     Dosage: TWO WEEKS
  5. PREDNISONE [Concomitant]
     Active Substance: PREDNISONE
     Indication: Giant cell arteritis
  6. PREDNISONE [Concomitant]
     Active Substance: PREDNISONE
     Indication: Pain

REACTIONS (7)
  - Administration site pain [Recovered/Resolved]
  - Product complaint [Unknown]
  - Needle issue [Unknown]
  - Nervousness [Unknown]
  - Stress [Unknown]
  - Wrong technique in device usage process [Unknown]
  - Device defective [Unknown]

NARRATIVE: CASE EVENT DATE: 20250105
